FAERS Safety Report 5849187-4 (Version None)
Quarter: 2008Q3

REPORT INFORMATION
  Report Type: 
  Country: None (occurrence: None)
  Receive Date: 20080818
  Receipt Date: 20080818
  Transmission Date: 20090109
  Serious: Yes (Disabling)
  Sender: FDA-Public Use
  Company Number: None

PATIENT
  Age: 27 Year
  Sex: Female
  Weight: 63.5036 kg

DRUGS (1)
  1. ZONISAMIDE [Suspect]
     Indication: CONVULSION
     Dosage: 100 MG 2X/DAY PO
     Route: 048
     Dates: start: 20080530, end: 20080801

REACTIONS (1)
  - URTICARIA [None]
